FAERS Safety Report 4410937-5 (Version None)
Quarter: 2004Q2

REPORT INFORMATION
  Report Type: 
  Country: None (occurrence: None)
  Receive Date: 20040630
  Receipt Date: 20040419
  Transmission Date: 20050107
  Serious: No
  Sender: FDA-Public Use
  Company Number: 04P-163-0257933-00

PATIENT
  Age: 61 Year
  Sex: Male
  Weight: 63.5036 kg

DRUGS (11)
  1. HUMIRA [Suspect]
     Indication: RHEUMATOID ARTHRITIS
     Dosage: 40 MG, 1 IN 2 WK, SUBCUTANEOUS
     Route: 057
     Dates: start: 20040209
  2. LORAZEPAM [Concomitant]
  3. UROCIT [Concomitant]
  4. LEFLUNOMIDE [Concomitant]
  5. RANITIDINE HYDROCHLORIDE [Concomitant]
  6. ALENDRONATE SODIUM [Concomitant]
  7. RABEPRAZOLE SODIUM [Concomitant]
  8. INDAPAMIDE [Concomitant]
  9. SERTRALINE HYDROCHLORIDE [Concomitant]
  10. PARACETAMOL [Concomitant]
  11. DARVOCET [Concomitant]

REACTIONS (6)
  - ASTHENIA [None]
  - HYPOAESTHESIA [None]
  - INJECTION SITE HAEMORRHAGE [None]
  - INJECTION SITE PAIN [None]
  - NASOPHARYNGITIS [None]
  - PARAESTHESIA [None]
